FAERS Safety Report 9564100 (Version 1)
Quarter: 2013Q3

REPORT INFORMATION
  Report Type: Report from Study
  Country: TR (occurrence: TR)
  Receive Date: 20130929
  Receipt Date: 20130929
  Transmission Date: 20140515
  Serious: Yes (Other)
  Sender: FDA-Public Use
  Company Number: PHHY2013TR102667

PATIENT
  Age: 43 Year
  Sex: Female

DRUGS (1)
  1. EVEROLIMUS [Suspect]
     Dosage: UNK UKN, UNK

REACTIONS (1)
  - Hepatitis alcoholic [Unknown]
